FAERS Safety Report 5191557-4 (Version None)
Quarter: 2006Q4

REPORT INFORMATION
  Report Type: 
  Country: None (occurrence: None)
  Receive Date: 20061220
  Receipt Date: 20061220
  Transmission Date: 20070319
  Serious: Yes (Life-Threatening)
  Sender: FDA-Public Use
  Company Number: None

PATIENT
  Age: 64 Year
  Sex: Male
  Weight: 94 kg

DRUGS (2)
  1. ATENOLOL [Suspect]
     Indication: HYPERTENSION
     Dosage: 50MG  DAILY PO
     Route: 048
  2. COENZYME Q10 [Suspect]
     Indication: MEDICAL DIET
     Dosage: 1 TABLET/CAPSULE  DAILY  PO
     Route: 048

REACTIONS (8)
  - AMNESIA [None]
  - ATRIOVENTRICULAR BLOCK SECOND DEGREE [None]
  - CONDUCTION DISORDER [None]
  - CONVULSION [None]
  - EYE ROLLING [None]
  - FALL [None]
  - LOSS OF CONSCIOUSNESS [None]
  - SYNCOPE [None]
